FAERS Safety Report 4659624-9 (Version None)
Quarter: 2005Q2

REPORT INFORMATION
  Report Type: 
  Country: None (occurrence: None)
  Receive Date: 20050411
  Receipt Date: 20050307
  Transmission Date: 20051028
  Serious: Yes (Other)
  Sender: FDA-Public Use
  Company Number: 397960

PATIENT
  Sex: Male

DRUGS (3)
  1. FUZEON [Suspect]
     Dosage: 180 MG 2 PER DAY SUBCUTANEOUS
     Route: 058
     Dates: start: 20030521
  2. TIPRANAVIR (TIPRANAVIR) [Concomitant]
  3. INTERLEUKIN (INTERLEUKIN NOS) [Concomitant]

REACTIONS (6)
  - ADVERSE EVENT [None]
  - CHEST X-RAY ABNORMAL [None]
  - COUGH [None]
  - LUNG INFILTRATION [None]
  - PNEUMONIA STAPHYLOCOCCAL [None]
  - WHEEZING [None]
